FAERS Safety Report 4823996-2 (Version None)
Quarter: 2005Q4

REPORT INFORMATION
  Report Type: 
  Country: None (occurrence: None)
  Receive Date: 20051107
  Receipt Date: 20051025
  Transmission Date: 20060501
  Serious: Yes (Hospitalization, Other)
  Sender: FDA-Public Use
  Company Number: 2005147145

PATIENT
  Age: 62 Year
  Sex: Female
  Weight: 98.8842 kg

DRUGS (16)
  1. NEURONTIN [Suspect]
     Indication: NEUROPATHY PERIPHERAL
  2. LYRICA [Suspect]
     Indication: NEUROPATHY PERIPHERAL
     Dosage: 150 MG (75 MG, 2 IN 1 D)
     Dates: start: 20051015
  3. ASPIRIN [Concomitant]
  4. TOPROL-XL [Concomitant]
  5. ALTACE [Concomitant]
  6. PRAVACHOL [Concomitant]
  7. PLAVIX [Concomitant]
  8. ZOLOFT [Concomitant]
  9. MAXZIDE [Concomitant]
  10. MORPHINE [Concomitant]
  11. OXYCONTIN [Concomitant]
  12. XANAX [Concomitant]
  13. VITAMINS (VITAMINS) [Concomitant]
  14. HERBAL PREPARATION (HERBAL PREPARATION) [Concomitant]
  15. IMDUR [Concomitant]
  16. REQUIP [Concomitant]

REACTIONS (2)
  - CORONARY ARTERIAL STENT INSERTION [None]
  - TOE AMPUTATION [None]
